FAERS Safety Report 7258839-3 (Version None)
Quarter: 2011Q1

REPORT INFORMATION
  Report Type: 
  Country: None (occurrence: None)
  Receive Date: 20110129
  Receipt Date: 20100503
  Transmission Date: 20110831
  Serious: No
  Sender: FDA-Public Use
  Company Number: US-ABBOTT-10P-163-0642689-00

PATIENT
  Age: 49 Year
  Sex: Female
  Weight: 77.18 kg

DRUGS (5)
  1. FOLIC ACID [Concomitant]
     Indication: FLUSHING
     Route: 048
  2. FOLIC ACID [Concomitant]
     Indication: PROPHYLAXIS
  3. HUMIRA [Suspect]
     Indication: RHEUMATOID ARTHRITIS
     Route: 058
     Dates: start: 20090701
  4. ESTRADIOL [Concomitant]
     Indication: HORMONE REPLACEMENT THERAPY
     Dosage: 1.0/0.5MG
     Route: 048
     Dates: start: 20080101
  5. METHOTREXATE [Concomitant]
     Indication: PRODUCT USED FOR UNKNOWN INDICATION
     Route: 048

REACTIONS (1)
  - FEELING HOT [None]
